FAERS Safety Report 8565242 (Version 3)
Quarter: 2012Q4

REPORT INFORMATION
  Report Type: Report from Study
  Country: US (occurrence: US)
  Receive Date: 20120516
  Receipt Date: 20120919
  Transmission Date: 20130627
  Serious: Yes (Other)
  Sender: FDA-Public Use
  Company Number: US-UCBSA-054584

PATIENT
  Age: 37 None
  Sex: Female
  Weight: 51.5 kg

DRUGS (9)
  1. CIMZIA [Suspect]
     Indication: CROHN^S DISEASE
     Route: 058
     Dates: start: 20110519, end: 2011
  2. ACETAMINOPHEN [Concomitant]
  3. PHENERGAN [Concomitant]
     Dosage: UNKNOWN DOSE
  4. LOMOTIL [Concomitant]
     Dosage: UNKNOWN DOSE
  5. NEXIUM [Concomitant]
     Dosage: UNKNOWN DOSE
  6. BENTYL [Concomitant]
     Dosage: UNKNOWN DOSE
  7. VITAMIN [Concomitant]
     Dosage: UNKNOWN DOSE
  8. LISINOPRIL [Concomitant]
     Dosage: UNKNOWN DOSE
  9. FERROUS SULPHATE [Concomitant]
     Dosage: UNKNOWN DOSE

REACTIONS (1)
  - Histoplasmosis disseminated [Recovered/Resolved]
